FAERS Safety Report 21650759 (Version 1)
Quarter: 2022Q4

REPORT INFORMATION
  Report Type: Spontaneous
  Country: CN (occurrence: CN)
  Receive Date: 20221128
  Receipt Date: 20221128
  Transmission Date: 20230113
  Serious: Yes (Other)
  Sender: FDA-Public Use
  Company Number: CN-009507513-2211CHN007126

PATIENT
  Age: 88 Year
  Sex: Male

DRUGS (1)
  1. CILASTATIN SODIUM\IMIPENEM [Suspect]
     Active Substance: CILASTATIN SODIUM\IMIPENEM
     Indication: Pneumonia
     Dosage: 1 G, TID, IV DRIP
     Route: 041
     Dates: start: 20220723, end: 20220727

REACTIONS (3)
  - Epilepsy [Unknown]
  - Pneumonia klebsiella [Unknown]
  - Convulsions local [Recovering/Resolving]

NARRATIVE: CASE EVENT DATE: 20220701
